FAERS Safety Report 8246155-2 (Version None)
Quarter: 2012Q1

REPORT INFORMATION
  Report Type: 
  Country: None (occurrence: None)
  Receive Date: 20120327
  Receipt Date: 20120319
  Transmission Date: 20120608
  Serious: Yes (Hospitalization)
  Sender: FDA-Public Use
  Company Number: 2012030112

PATIENT
  Age: 59 Year
  Sex: Male

DRUGS (8)
  1. FUROSEMIDE [Suspect]
  2. SAXAGLIPTIN (SAXAGLIPTIN) [Suspect]
     Indication: TYPE 2 DIABETES MELLITUS
     Dates: start: 20110325
  3. SPIRONOLACTONE [Suspect]
  4. EZETIMIBE [Concomitant]
  5. PLACEBO [Suspect]
     Indication: TYPE 2 DIABETES MELLITUS
     Dates: start: 20110325
  6. TORSEMIDE [Suspect]
  7. ASPIRIN [Concomitant]
  8. CARVEDILOL [Suspect]

REACTIONS (9)
  - CONDITION AGGRAVATED [None]
  - AORTIC VALVE INCOMPETENCE [None]
  - HEPATIC STEATOSIS [None]
  - RENAL FAILURE ACUTE [None]
  - DILATATION VENTRICULAR [None]
  - HYPOTENSION [None]
  - VISION BLURRED [None]
  - LEFT ATRIAL DILATATION [None]
  - AORTIC VALVE SCLEROSIS [None]
